FAERS Safety Report 6905153-9 (Version None)
Quarter: 2010Q3

REPORT INFORMATION
  Report Type: 
  Country: None (occurrence: None)
  Receive Date: 20100804
  Receipt Date: 20091124
  Transmission Date: 20110219
  Serious: No
  Sender: FDA-Public Use
  Company Number: US-PFIZER INC-2008153329

PATIENT
  Sex: Female
  Weight: 165.53 kg

DRUGS (7)
  1. LYRICA [Suspect]
     Indication: FIBROMYALGIA
     Dosage: 75 MG, 2X/DAY
     Dates: start: 20080101, end: 20091120
  2. WARFARIN [Concomitant]
     Dosage: UNK
  3. BENICAR [Concomitant]
     Dosage: UNK
  4. TYLENOL PM [Concomitant]
     Dosage: UNK
  5. FISH OIL [Concomitant]
     Dosage: UNK
  6. MOBIC [Concomitant]
     Indication: ARTHRITIS
     Dosage: UNK
  7. EXTRA STRENGTH TYLENOL [Concomitant]
     Dosage: UNK

REACTIONS (5)
  - BLOOD PRESSURE INCREASED [None]
  - DIZZINESS [None]
  - IRRITABILITY [None]
  - MOOD ALTERED [None]
  - WEIGHT LOSS POOR [None]
